FAERS Safety Report 20610112 (Version 1)
Quarter: 2022Q1

REPORT INFORMATION
  Report Type: Spontaneous
  Country: AU (occurrence: AU)
  Receive Date: 20220318
  Receipt Date: 20220318
  Transmission Date: 20220423
  Serious: Yes (Hospitalization, Other)
  Sender: FDA-Public Use
  Company Number: AU-GENERIC HEALTH PTY. LTD.-2022-03566

PATIENT
  Age: 27 Year
  Sex: Female

DRUGS (3)
  1. OXYTOCIN [Suspect]
     Active Substance: OXYTOCIN
     Indication: Abortion induced
     Dosage: UNK, INFUSION
     Route: 042
  2. MISOPROSTOL [Suspect]
     Active Substance: MISOPROSTOL
     Indication: Abortion induced
     Dosage: 1000 MG, EVERY 4 HOURS
     Route: 002
  3. MIFEPRISTONE [Suspect]
     Active Substance: MIFEPRISTONE
     Indication: Abortion induced
     Dosage: 200 MG
     Route: 048

REACTIONS (3)
  - Drug ineffective for unapproved indication [Unknown]
  - Maternal exposure during pregnancy [Unknown]
  - Off label use [Unknown]
